FAERS Safety Report 5341346-2 (Version None)
Quarter: 2007Q2

REPORT INFORMATION
  Report Type: 
  Country: None (occurrence: None)
  Receive Date: 20070530
  Receipt Date: 20070518
  Transmission Date: 20071010
  Serious: Yes (Death, Hospitalization)
  Sender: FDA-Public Use
  Company Number: 163-C5013-06080058

PATIENT
  Age: 56 Year
  Sex: Male
  Weight: 100.6 kg

DRUGS (7)
  1. CC-5013 (LENALIDOMIDE) (CAPSULES) [Suspect]
     Indication: MULTIPLE MYELOMA
     Dosage: 25 MG, 1 IN 1 D, ORAL
     Route: 048
     Dates: start: 20060516, end: 20060719
  2. DEXAMETHASONE TAB [Suspect]
     Indication: MULTIPLE MYELOMA
     Dosage: 40 MG, ORAL
     Route: 048
     Dates: start: 20060516, end: 20060719
  3. VALTREX [Concomitant]
  4. OXYCONTIN [Concomitant]
  5. NEURONTIN [Concomitant]
  6. ACYCLOVIR [Concomitant]
  7. DICLOXACILLIN [Concomitant]

REACTIONS (25)
  - ALTERED STATE OF CONSCIOUSNESS [None]
  - BLOOD CALCIUM DECREASED [None]
  - BLOOD CREATININE INCREASED [None]
  - CEREBRAL ATROPHY [None]
  - CEREBRAL HAEMORRHAGE [None]
  - CHEST X-RAY ABNORMAL [None]
  - CONFUSIONAL STATE [None]
  - CUSHINGOID [None]
  - ECCHYMOSIS [None]
  - HAEMOGLOBIN DECREASED [None]
  - HERPES SIMPLEX [None]
  - HERPES ZOSTER DISSEMINATED [None]
  - IMMUNOSUPPRESSION [None]
  - INFECTION IN AN IMMUNOCOMPROMISED HOST [None]
  - NEUTROPENIA [None]
  - PITTING OEDEMA [None]
  - PULMONARY MASS [None]
  - PURPURA [None]
  - RASH PUSTULAR [None]
  - SEPSIS [None]
  - SEPTIC SHOCK [None]
  - SINUS TACHYCARDIA [None]
  - SOMNOLENCE [None]
  - THROMBOCYTOPENIA [None]
  - WHITE BLOOD CELLS URINE POSITIVE [None]
